FAERS Safety Report 11441159 (Version 1)
Quarter: 2015Q3

REPORT INFORMATION
  Report Type: Spontaneous
  Country: US (occurrence: US)
  Receive Date: 20150821
  Receipt Date: 20150821
  Transmission Date: 20151125
  Serious: No
  Sender: FDA-Public Use
  Company Number: US-ELI_LILLY_AND_COMPANY-US200802006863

PATIENT
  Age: 60 Year
  Sex: Female

DRUGS (1)
  1. CYMBALTA [Suspect]
     Active Substance: DULOXETINE HYDROCHLORIDE
     Indication: ANXIETY
     Dosage: 90 MG, UNK
     Dates: start: 200711

REACTIONS (7)
  - Ear congestion [Not Recovered/Not Resolved]
  - Herpes zoster [Recovering/Resolving]
  - Rash [Recovering/Resolving]
  - Ear pain [Recovering/Resolving]
  - Feeling abnormal [Recovering/Resolving]
  - Nasal congestion [Not Recovered/Not Resolved]
  - Palpitations [Recovering/Resolving]
